FAERS Safety Report 7256966-8 (Version None)
Quarter: 2011Q1

REPORT INFORMATION
  Report Type: 
  Country: None (occurrence: None)
  Receive Date: 20110129
  Receipt Date: 20100725
  Transmission Date: 20110831
  Serious: No
  Sender: FDA-Public Use
  Company Number: US-ABBOTT-10P-163-0659684-00

PATIENT
  Age: 37 Year
  Sex: Female

DRUGS (5)
  1. HUMIRA [Suspect]
     Indication: CROHN'S DISEASE
     Dates: start: 20100716
  2. INURAN [Concomitant]
     Indication: CROHN'S DISEASE
     Dosage: 50MG DAILY
  3. KLONAPIN [Concomitant]
     Indication: INSOMNIA
  4. KLONAPIN [Concomitant]
     Indication: ANXIETY
  5. COREG [Concomitant]
     Indication: CARDIAC FAILURE CONGESTIVE

REACTIONS (5)
  - ARTHRALGIA [None]
  - JOINT SPRAIN [None]
  - JOINT STIFFNESS [None]
  - JOINT SWELLING [None]
  - HYPOAESTHESIA [None]
